FAERS Safety Report 12912365 (Version 1)
Quarter: 2016Q4

REPORT INFORMATION
  Report Type: Report from Study
  Country: US (occurrence: US)
  Receive Date: 20161104
  Receipt Date: 20161104
  Transmission Date: 20170207
  Serious: Yes (Other)
  Sender: FDA-Public Use
  Company Number: US-MALLINCKRODT-T201605380

PATIENT
  Age: 63 Year
  Sex: Female

DRUGS (5)
  1. REPOSITORY CORTICOTROPIN INJECTION [Suspect]
     Active Substance: CORTICOTROPIN
     Indication: RHEUMATOID ARTHRITIS
     Dosage: 80 UNITS ONCE WEEKLY (FRIDAY); ON 3 WEEKS OFF 1 WEEK
     Route: 058
     Dates: start: 201609
  2. GABAPENTIN. [Concomitant]
     Active Substance: GABAPENTIN
  3. REPOSITORY CORTICOTROPIN INJECTION [Suspect]
     Active Substance: CORTICOTROPIN
     Dosage: UNKNOWN
     Route: 058
     Dates: start: 20160715, end: 201609
  4. REPOSITORY CORTICOTROPIN INJECTION [Suspect]
     Active Substance: CORTICOTROPIN
     Dosage: 80 UNITS ONCE WEEKLY
     Route: 058
     Dates: start: 20150505
  5. REPOSITORY CORTICOTROPIN INJECTION [Suspect]
     Active Substance: CORTICOTROPIN
     Dosage: 80 UNITS ONCE DAILY X 5 DAYS
     Route: 058
     Dates: start: 201609, end: 201609

REACTIONS (4)
  - Condition aggravated [Recovering/Resolving]
  - Vertigo [Not Recovered/Not Resolved]
  - Sciatica [Not Recovered/Not Resolved]
  - Fall [Recovering/Resolving]

NARRATIVE: CASE EVENT DATE: 201604
